FAERS Safety Report 12072659 (Version 1)
Quarter: 2016Q1

REPORT INFORMATION
  Report Type: Spontaneous
  Country: US (occurrence: US)
  Receive Date: 20160212
  Receipt Date: 20160212
  Transmission Date: 20160526
  Serious: Yes (Death)
  Sender: FDA-Public Use
  Company Number: US-MYLANLABS-2016M1005328

PATIENT

DRUGS (2)
  1. CYSTAGON [Suspect]
     Active Substance: CYSTEAMINE BITARTRATE
     Indication: HUNTINGTON^S DISEASE
     Dosage: 450 MG, QID
     Route: 048
     Dates: start: 20141205, end: 20150628
  2. CYSTAGON [Suspect]
     Active Substance: CYSTEAMINE BITARTRATE
     Indication: OFF LABEL USE

REACTIONS (1)
  - Death [Fatal]

NARRATIVE: CASE EVENT DATE: 20160122
